FAERS Safety Report 13243086 (Version 1)
Quarter: 2017Q1

REPORT INFORMATION
  Report Type: Spontaneous
  Country: FR (occurrence: FR)
  Receive Date: 20170216
  Receipt Date: 20170216
  Transmission Date: 20170428
  Serious: Yes (Hospitalization)
  Sender: FDA-Public Use
  Company Number: FR-MYLANLABS-2017M1009299

PATIENT

DRUGS (10)
  1. TERCIAN                            /00759301/ [Suspect]
     Active Substance: CYAMEMAZINE
     Indication: BEHAVIOURAL THERAPY
     Dosage: 40 GTT, TID
     Route: 048
     Dates: start: 20161219
  2. XEROQUEL [Suspect]
     Active Substance: QUETIAPINE FUMARATE
     Indication: BEHAVIOURAL THERAPY
     Dosage: 3 DF, QD
     Route: 048
     Dates: start: 20161031
  3. TERALITHE [Concomitant]
     Active Substance: LITHIUM CARBONATE
     Indication: BEHAVIOURAL THERAPY
     Dosage: 2.5 DF, QD
     Route: 048
     Dates: start: 20161026
  4. DRIPTANE 5 MG, COMPRIM? S?CABLE [Suspect]
     Active Substance: OXYBUTYNIN CHLORIDE
     Indication: PRODUCT USED FOR UNKNOWN INDICATION
     Dosage: 2.5 MG, TID
     Route: 048
     Dates: start: 20161208, end: 20161226
  5. TERCIAN                            /00759301/ [Suspect]
     Active Substance: CYAMEMAZINE
     Dosage: UNK
     Route: 048
  6. FLUOXETINE [Concomitant]
     Active Substance: FLUOXETINE HYDROCHLORIDE
     Indication: BEHAVIOURAL THERAPY
     Dosage: 40 MG, QD
     Route: 048
     Dates: start: 20161030
  7. VALIUM [Concomitant]
     Active Substance: DIAZEPAM
     Indication: BEHAVIOURAL THERAPY
     Dosage: 100 GTT, QD
     Route: 048
     Dates: start: 20161227
  8. MECIR [Concomitant]
     Active Substance: TAMSULOSIN HYDROCHLORIDE
     Indication: PRODUCT USED FOR UNKNOWN INDICATION
     Dosage: 1 DF, QD
     Route: 048
     Dates: start: 20161227
  9. THERALENE [Suspect]
     Active Substance: TRIMEPRAZINE
     Indication: BEHAVIOURAL THERAPY
     Dosage: 60 GTT, QD
     Route: 048
     Dates: start: 20150910
  10. LEPTICUR [Suspect]
     Active Substance: TROPATEPINE HYDROCHLORIDE
     Indication: PROPHYLAXIS
     Dosage: 3 DF, QD
     Route: 048
     Dates: start: 20161026

REACTIONS (2)
  - Urinary retention [Recovered/Resolved]
  - Septic shock [Recovered/Resolved]

NARRATIVE: CASE EVENT DATE: 201701
